FAERS Safety Report 7779697-4 (Version None)
Quarter: 2011Q3

REPORT INFORMATION
  Report Type: 
  Country: None (occurrence: None)
  Receive Date: 20110927
  Receipt Date: 20110921
  Transmission Date: 20111222
  Serious: Yes (Hospitalization, Other)
  Sender: FDA-Public Use
  Company Number: US-PFIZER INC-2011225215

PATIENT
  Sex: Female

DRUGS (3)
  1. LAMICTAL [Concomitant]
     Dosage: 200 MG, UNK
  2. DILANTIN [Suspect]
     Dosage: 100MG THREE TIMES DURING DAY AND 200MG  AT BED TIME
     Route: 048
  3. DILANTIN [Suspect]
     Indication: CONVULSION
     Dosage: UNK
     Route: 048

REACTIONS (2)
  - CELLULITIS [None]
  - CONVULSION [None]
